FAERS Safety Report 19520158 (Version 2)
Quarter: 2021Q3

REPORT INFORMATION
  Report Type: Spontaneous
  Country: US (occurrence: US)
  Receive Date: 20210712
  Receipt Date: 20210720
  Transmission Date: 20211014
  Serious: Yes (Other)
  Sender: FDA-Public Use
  Company Number: US-PFIZER INC-2021458323

PATIENT
  Age: 55 Year
  Sex: Female

DRUGS (1)
  1. INLYTA [Suspect]
     Active Substance: AXITINIB
     Dosage: 5 MG, 2X/DAY
     Dates: start: 20210419

REACTIONS (14)
  - Appetite disorder [Unknown]
  - Oral mucosal eruption [Unknown]
  - Weight decreased [Unknown]
  - Oral candidiasis [Unknown]
  - Diarrhoea [Unknown]
  - Stomatitis [Unknown]
  - Pharyngeal disorder [Unknown]
  - Fatigue [Unknown]
  - Vomiting [Unknown]
  - Palmar-plantar erythrodysaesthesia syndrome [Unknown]
  - Dysstasia [Unknown]
  - Oral mucosal blistering [Unknown]
  - Illness [Unknown]
  - Feeling abnormal [Unknown]

NARRATIVE: CASE EVENT DATE: 2021
